FAERS Safety Report 7887318-5 (Version None)
Quarter: 2011Q4

REPORT INFORMATION
  Report Type: 
  Country: None (occurrence: None)
  Receive Date: 20111102
  Receipt Date: 20110718
  Transmission Date: 20120403
  Serious: No
  Sender: FDA-Public Use
  Company Number: US-AMGEN-USASP2011036368

PATIENT
  Sex: Male

DRUGS (4)
  1. ENBREL [Suspect]
     Indication: RHEUMATOID ARTHRITIS
     Dosage: 50 MG, QWK
     Dates: start: 20091201, end: 20100401
  2. METHOTREXATE [Concomitant]
     Dosage: UNK
     Dates: end: 20100401
  3. ENBREL [Suspect]
     Dosage: 50 MG, QWK
     Dates: start: 20110301
  4. CELEBREX [Concomitant]
     Dosage: UNK
     Dates: end: 20100401

REACTIONS (5)
  - ARTHRALGIA [None]
  - JOINT SWELLING [None]
  - INJECTION SITE RASH [None]
  - PNEUMONIA [None]
  - RASH [None]
